FAERS Safety Report 6022473-3 (Version None)
Quarter: 2008Q4

REPORT INFORMATION
  Report Type: 
  Country: None (occurrence: None)
  Receive Date: 20081221
  Receipt Date: 20081221
  Transmission Date: 20090506
  Serious: Yes (Other)
  Sender: FDA-Public Use
  Company Number: None

PATIENT
  Age: 42 Year
  Sex: Female
  Weight: 60.782 kg

DRUGS (2)
  1. ACTONEL [Suspect]
     Indication: OSTEOPENIA
     Dosage: 35MG  ONCE A WEEK
     Dates: start: 20081031, end: 20081221
  2. ACTONEL [Suspect]
     Indication: RHEUMATOID ARTHRITIS
     Dosage: 35MG  ONCE A WEEK
     Dates: start: 20081031, end: 20081221

REACTIONS (3)
  - ARTHRALGIA [None]
  - FATIGUE [None]
  - MYALGIA [None]
